FAERS Safety Report 11909988 (Version 1)
Quarter: 2016Q1

REPORT INFORMATION
  Report Type: Spontaneous
  Country: US (occurrence: None)
  Receive Date: 20160111
  Receipt Date: 20160111
  Transmission Date: 20160526
  Serious: Yes (Other)
  Sender: FDA-Public Use
  Company Number: None

PATIENT
  Age: 27 Day
  Sex: Female
  Weight: 48.99 kg

DRUGS (7)
  1. GINGKO BILOBA [Concomitant]
  2. IRON [Concomitant]
     Active Substance: IRON
  3. BIOTIN [Concomitant]
     Active Substance: BIOTIN
  4. CIPROFLOXACIN 500MG CIPROBAY [Suspect]
     Active Substance: CIPROFLOXACIN
     Indication: URINARY TRACT INFECTION
     Route: 048
     Dates: start: 20151206, end: 20151210
  5. GABA [Concomitant]
     Active Substance: .GAMMA.-AMINOBUTYRIC ACID
  6. MELATONIN [Concomitant]
     Active Substance: MELATONIN
  7. MAGNESIUM [Concomitant]
     Active Substance: MAGNESIUM

REACTIONS (3)
  - Night sweats [None]
  - Emotional disorder [None]
  - Insomnia [None]

NARRATIVE: CASE EVENT DATE: 20160111
